FAERS Safety Report 7349931-3 (Version None)
Quarter: 2011Q1

REPORT INFORMATION
  Report Type: 
  Country: None (occurrence: None)
  Receive Date: 20110314
  Receipt Date: 20110304
  Transmission Date: 20110831
  Serious: Yes (Hospitalization)
  Sender: FDA-Public Use
  Company Number: JP-ASTRAZENECA-2011SE12885

PATIENT
  Age: 23 Year
  Sex: Male

DRUGS (5)
  1. TAMIFLU [Concomitant]
     Route: 048
  2. CLARITH [Concomitant]
     Route: 048
  3. OMEPRAL [Suspect]
     Route: 048
  4. CALONAL [Concomitant]
     Route: 048
  5. CRESTOR [Suspect]
     Route: 048

REACTIONS (1)
  - RHABDOMYOLYSIS [None]
